FAERS Safety Report 16187085 (Version 1)
Quarter: 2019Q2

REPORT INFORMATION
  Report Type: Spontaneous
  Country: BR (occurrence: BR)
  Receive Date: 20190411
  Receipt Date: 20190411
  Transmission Date: 20190711
  Serious: Yes (Hospitalization)
  Sender: FDA-Public Use
  Company Number: BR-009507513-1904BRA004724

PATIENT
  Age: 53 Year
  Sex: Male
  Weight: 67 kg

DRUGS (7)
  1. GLIVEC [Interacting]
     Active Substance: IMATINIB MESYLATE
     Dosage: 400 MG/D
     Route: 048
     Dates: start: 20020605
  2. GLIVEC [Interacting]
     Active Substance: IMATINIB MESYLATE
     Indication: GASTROINTESTINAL STROMAL TUMOUR
     Dosage: 600 MG/D
     Route: 048
     Dates: start: 20011021, end: 20020604
  3. METFORMIN [Concomitant]
     Active Substance: METFORMIN HYDROCHLORIDE
     Dosage: 250 MG/D
     Route: 048
  4. GLUCOBAY [Concomitant]
     Active Substance: ACARBOSE
     Dosage: 100 MG/D
     Route: 048
  5. REMERON SOLTAB [Suspect]
     Active Substance: MIRTAZAPINE
     Dosage: 15 MG/DAY
     Route: 048
  6. LEXOTAN [Concomitant]
     Active Substance: BROMAZEPAM
     Dosage: 1 DF/DAY
     Route: 048
  7. VALIUM [Concomitant]
     Active Substance: DIAZEPAM
     Dosage: 5 MG, PRN
     Route: 048

REACTIONS (10)
  - Drug interaction [Recovered/Resolved]
  - Flatulence [Unknown]
  - Pain in extremity [Unknown]
  - Blood pressure decreased [Recovered/Resolved]
  - Eye disorder [Unknown]
  - Eyelid oedema [Unknown]
  - Nausea [Unknown]
  - Erectile dysfunction [Unknown]
  - Prostatic specific antigen increased [Unknown]
  - Blood creatine phosphokinase increased [Unknown]
